FAERS Safety Report 15253376 (Version 1)
Quarter: 2018Q3

REPORT INFORMATION
  Report Type: Spontaneous
  Country: PL (occurrence: PL)
  Receive Date: 20180808
  Receipt Date: 20180808
  Transmission Date: 20181010
  Serious: Yes (Hospitalization)
  Sender: FDA-Public Use
  Company Number: PL-SUN PHARMACEUTICAL INDUSTRIES LTD-2018RR-180774

PATIENT
  Age: 17 Year
  Sex: Female
  Weight: 53.5 kg

DRUGS (3)
  1. SETALOFT [Concomitant]
     Indication: PRODUCT USED FOR UNKNOWN INDICATION
     Dosage: 50 MG, BID
     Route: 065
  2. LEVEBON [Concomitant]
     Indication: PRODUCT USED FOR UNKNOWN INDICATION
     Dosage: DOSE: 1X1 ()
     Route: 065
  3. AXOTRET [Suspect]
     Active Substance: ISOTRETINOIN
     Indication: PRODUCT USED FOR UNKNOWN INDICATION
     Dosage: DOSE: 40?60 MG; MEAN DAILY DOSE: 50 MG
     Route: 048
     Dates: start: 20171011, end: 20180205

REACTIONS (6)
  - Haematochezia [Recovering/Resolving]
  - Red blood cell sedimentation rate increased [Recovering/Resolving]
  - Transaminases increased [Recovering/Resolving]
  - C-reactive protein increased [Recovering/Resolving]
  - Epistaxis [Recovering/Resolving]
  - Proctitis [Recovering/Resolving]

NARRATIVE: CASE EVENT DATE: 20180128
